FAERS Safety Report 17712894 (Version 1)
Quarter: 2020Q2

REPORT INFORMATION
  Report Type: Spontaneous
  Country: CN (occurrence: CN)
  Receive Date: 20200427
  Receipt Date: 20200427
  Transmission Date: 20200714
  Serious: Yes (Other)
  Sender: FDA-Public Use
  Company Number: CN-JNJFOC-20200431177

PATIENT
  Sex: Female

DRUGS (3)
  1. RIVAROXABAN [Suspect]
     Active Substance: RIVAROXABAN
     Indication: THROMBOSIS PROPHYLAXIS
  2. RIVAROXABAN [Suspect]
     Active Substance: RIVAROXABAN
     Indication: PULMONARY EMBOLISM
     Dosage: 2 DF, QD
     Route: 048
     Dates: start: 20200207
  3. YI TIAN [Concomitant]

REACTIONS (8)
  - Off label use [Unknown]
  - Chest discomfort [Not Recovered/Not Resolved]
  - Product administration error [Unknown]
  - Chest pain [Recovering/Resolving]
  - Back pain [Recovering/Resolving]
  - Thrombosis [Unknown]
  - Wheezing [Recovering/Resolving]
  - Hyperhidrosis [Recovering/Resolving]

NARRATIVE: CASE EVENT DATE: 202002
